FAERS Safety Report 13133307 (Version 1)
Quarter: 2017Q1

REPORT INFORMATION
  Report Type: Spontaneous
  Country: US (occurrence: US)
  Receive Date: 20170119
  Receipt Date: 20170119
  Transmission Date: 20170428
  Serious: No
  Sender: FDA-Public Use
  Company Number: None

PATIENT
  Age: 53 Year
  Sex: Female

DRUGS (4)
  1. COPAXONE [Suspect]
     Active Substance: GLATIRAMER ACETATE
     Indication: LYMPHOPENIA
  2. COPAXONE [Suspect]
     Active Substance: GLATIRAMER ACETATE
     Indication: MULTIPLE SCLEROSIS
  3. COPAXONE [Suspect]
     Active Substance: GLATIRAMER ACETATE
     Indication: VITAMIN D DEFICIENCY
  4. COPAXONE [Suspect]
     Active Substance: GLATIRAMER ACETATE
     Indication: EPILEPSY

REACTIONS (2)
  - Drug dose omission [None]
  - Treatment noncompliance [None]

NARRATIVE: CASE EVENT DATE: 20170119
